FAERS Safety Report 23981218 (Version 1)
Quarter: 2024Q2

REPORT INFORMATION
  Report Type: Spontaneous
  Country: US (occurrence: None)
  Receive Date: 20240614
  Receipt Date: 20240614
  Transmission Date: 20240716
  Serious: Yes (Hospitalization)
  Sender: FDA-Public Use
  Company Number: None

PATIENT
  Sex: Female

DRUGS (11)
  1. KISQALI [Suspect]
     Active Substance: RIBOCICLIB
     Indication: Breast cancer female
     Dosage: FREQ: TAKE 3 TABLETS BY MOUTH DAILY FOR 21 DAYS, WITHHOLD FOR 7 DAYS, THEN REPEAT CYCLE
     Route: 048
     Dates: start: 20240523
  2. ASPIRIN [Concomitant]
     Active Substance: ASPIRIN
  3. CALCIUM CIT [Concomitant]
  4. COPPER [Concomitant]
     Active Substance: COPPER
  5. D2000 [Concomitant]
  6. ERGOCLACIFER [Concomitant]
  7. FERRIC POLYSACCHARIDE COMPLEX [Concomitant]
     Active Substance: FERRIC POLYSACCHARIDE COMPLEX
  8. ACETAMINOPHEN\HYDROCODONE [Concomitant]
     Active Substance: ACETAMINOPHEN\HYDROCODONE
  9. IPRATROPIUM [Concomitant]
  10. LACTASE [Concomitant]
     Active Substance: LACTASE
  11. MAGNESIUM [Concomitant]

REACTIONS (2)
  - Hospitalisation [None]
  - Therapy interrupted [None]
